FAERS Safety Report 12699742 (Version 1)
Quarter: 2016Q3

REPORT INFORMATION
  Report Type: Spontaneous
  Country: BR (occurrence: BR)
  Receive Date: 20160830
  Receipt Date: 20160830
  Transmission Date: 20161109
  Serious: Yes (Hospitalization)
  Sender: FDA-Public Use
  Company Number: PHHY2016BR118052

PATIENT
  Age: 78 Year
  Sex: Female
  Weight: 60 kg

DRUGS (2)
  1. ONBREZ BREEZHALER [Suspect]
     Active Substance: INDACATEROL
     Indication: RESPIRATORY FAILURE
     Dosage: UNK UNK, QD
     Route: 055
  2. SEEBRI BREEZHALER [Suspect]
     Active Substance: GLYCOPYRROLATE
     Indication: RESPIRATORY FAILURE
     Dosage: UNK UNK, QD
     Route: 055

REACTIONS (6)
  - Product use issue [Unknown]
  - Sensitivity to weather change [Unknown]
  - Tremor [Not Recovered/Not Resolved]
  - Nasopharyngitis [Recovered/Resolved]
  - Anxiety [Unknown]
  - Blood pressure abnormal [Recovering/Resolving]

NARRATIVE: CASE EVENT DATE: 201512
